FAERS Safety Report 14094937 (Version 2)
Quarter: 2017Q4

REPORT INFORMATION
  Report Type: Spontaneous
  Country: US (occurrence: US)
  Receive Date: 20171016
  Receipt Date: 20171027
  Transmission Date: 20180321
  Serious: Yes (Hospitalization, Other)
  Sender: FDA-Public Use
  Company Number: US-AMGEN-USASP2017154118

PATIENT
  Age: 65 Year
  Sex: Female

DRUGS (11)
  1. ENBREL [Suspect]
     Active Substance: ETANERCEPT
     Dosage: 50 MG, QWK
     Route: 058
     Dates: start: 201611, end: 201705
  2. METFORMIN [Concomitant]
     Active Substance: METFORMIN HYDROCHLORIDE
     Dosage: 1 G, BID
  3. TRAMADOL. [Concomitant]
     Active Substance: TRAMADOL
     Dosage: 50 MG, UNK, Q6H PRN
  4. PROVENTIL [Concomitant]
     Active Substance: ALBUTEROL
     Dosage: UNK, AS NECESSARY
  5. LIPITOR [Concomitant]
     Active Substance: ATORVASTATIN CALCIUM
     Dosage: 20 MG, QD
  6. ATENOLOL. [Concomitant]
     Active Substance: ATENOLOL
     Dosage: 50 MG, BID
  7. AMITRIPTYLINE [Concomitant]
     Active Substance: AMITRIPTYLINE
     Dosage: 50 MG, QHS
  8. ENBREL [Suspect]
     Active Substance: ETANERCEPT
     Dosage: 50 MG, 2 TIMES/WK
     Route: 065
     Dates: start: 201705, end: 20171010
  9. CLOBETASOL [Concomitant]
     Active Substance: CLOBETASOL
     Dosage: UNK, AS NECESSARY
  10. ENBREL [Suspect]
     Active Substance: ETANERCEPT
     Indication: PSORIASIS
     Dosage: 50 MG, QWK
     Route: 058
     Dates: start: 20050808
  11. TRIAMCINOLONE [Concomitant]
     Active Substance: TRIAMCINOLONE
     Dosage: UNK, AS NECESSARY

REACTIONS (28)
  - Portal vein thrombosis [Unknown]
  - Red blood cell count decreased [Unknown]
  - Hepatic cirrhosis [Unknown]
  - Haematocrit decreased [Unknown]
  - Glomerular filtration rate decreased [Unknown]
  - Blood bilirubin increased [Unknown]
  - Globulins increased [Unknown]
  - Albumin globulin ratio abnormal [Unknown]
  - Red cell distribution width increased [Unknown]
  - Protein total increased [Unknown]
  - Psoriasis [Unknown]
  - Ascites [Unknown]
  - Hepatobiliary scan abnormal [Unknown]
  - Ammonia increased [Unknown]
  - Cholecystitis chronic [Unknown]
  - Monocyte count decreased [Unknown]
  - Contusion [Not Recovered/Not Resolved]
  - Swelling [Not Recovered/Not Resolved]
  - Off label use [Unknown]
  - Biliary dyskinesia [Unknown]
  - Platelet count decreased [Unknown]
  - Blood urea increased [Unknown]
  - Gallbladder obstruction [Unknown]
  - Portal hypertension [Unknown]
  - Monocyte count increased [Unknown]
  - Blood creatinine increased [Unknown]
  - Blood calcium increased [Unknown]
  - Blood glucose increased [Unknown]

NARRATIVE: CASE EVENT DATE: 2017
